FAERS Safety Report 13892723 (Version 1)
Quarter: 2017Q3

REPORT INFORMATION
  Report Type: Spontaneous
  Country: US (occurrence: US)
  Receive Date: 20170822
  Receipt Date: 20170822
  Transmission Date: 20171127
  Serious: Yes (Other)
  Sender: FDA-Public Use
  Company Number: US-ROCHE-1288288

PATIENT
  Age: 57 Year
  Sex: Female
  Weight: 79.45 kg

DRUGS (8)
  1. BENADRYL [Concomitant]
     Active Substance: DIPHENHYDRAMINE HYDROCHLORIDE
     Route: 042
  2. PREDNISONE. [Concomitant]
     Active Substance: PREDNISONE
     Route: 048
  3. VITAMIN C [Concomitant]
     Active Substance: ASCORBIC ACID
     Route: 065
  4. ERGOCALCIFEROL. [Concomitant]
     Active Substance: ERGOCALCIFEROL
     Dosage: 50000 UNITS, 1 PILL ORAL ONCE IN A DAY FOR 14 DAYS THEN 1 PILL 3 TIMES A WEEK
     Route: 048
  5. HERCEPTIN [Suspect]
     Active Substance: TRASTUZUMAB
     Indication: HER-2 POSITIVE BREAST CANCER
     Route: 042
     Dates: start: 2009
  6. ZANTAC [Concomitant]
     Active Substance: RANITIDINE HYDROCHLORIDE
     Route: 065
  7. FISH OIL [Concomitant]
     Active Substance: FISH OIL
     Dosage: DOUBLE STRENGTH
     Route: 065
  8. BIOTIN [Concomitant]
     Active Substance: BIOTIN
     Route: 065

REACTIONS (12)
  - Headache [Unknown]
  - Asthma [Unknown]
  - Nasal congestion [Unknown]
  - Anaphylactic reaction [Recovered/Resolved]
  - Arthralgia [Unknown]
  - Dyspepsia [Unknown]
  - Drug ineffective [Unknown]
  - Myalgia [Unknown]
  - Gingival bleeding [Unknown]
  - Weight increased [Unknown]
  - Cataract [Unknown]
  - Chest pain [Unknown]

NARRATIVE: CASE EVENT DATE: 20130919
